FAERS Safety Report 23711222 (Version 2)
Quarter: 2024Q2

REPORT INFORMATION
  Report Type: Report from Study
  Country: KR (occurrence: KR)
  Receive Date: 20240405
  Receipt Date: 20240410
  Transmission Date: 20240715
  Serious: Yes (Other)
  Sender: FDA-Public Use
  Company Number: KR-UCBSA-2024015805

PATIENT

DRUGS (2)
  1. LEVETIRACETAM [Suspect]
     Active Substance: LEVETIRACETAM
     Indication: Epilepsy
     Dosage: UNK
  2. PERAMPANEL [Suspect]
     Active Substance: PERAMPANEL
     Indication: Epilepsy
     Dosage: STARTED AT 2 MG/DAY AND INCREASED BY 2 MG/DAY BIWEEKLY OR MORE UNTIL A MAINTENANCE DOSE WAS REACHED

REACTIONS (7)
  - Acute psychosis [Unknown]
  - Intentional self-injury [Unknown]
  - Aggression [Unknown]
  - Irritability [Unknown]
  - Affect lability [Unknown]
  - Agitation [Unknown]
  - Depression [Unknown]
